FAERS Safety Report 23038334 (Version 2)
Quarter: 2023Q4

REPORT INFORMATION
  Report Type: Report from Study
  Country: US (occurrence: US)
  Receive Date: 20231006
  Receipt Date: 20231218
  Transmission Date: 20240110
  Serious: No
  Sender: FDA-Public Use
  Company Number: US-002147023-NVSC2023US212362

PATIENT
  Age: 63 Year
  Sex: Female

DRUGS (1)
  1. KESIMPTA [Suspect]
     Active Substance: OFATUMUMAB
     Indication: Multiple sclerosis
     Dosage: 20 MG (EVERY OTHER DAY)
     Route: 058
     Dates: start: 20230922

REACTIONS (4)
  - Peripheral coldness [Unknown]
  - Hypoaesthesia [Unknown]
  - Feeling hot [Unknown]
  - Pain [Unknown]

NARRATIVE: CASE EVENT DATE: 20230922
